FAERS Safety Report 9293313 (Version 1)
Quarter: 2013Q2

REPORT INFORMATION
  Report Type: Spontaneous
  Country: US (occurrence: US)
  Receive Date: 20130517
  Receipt Date: 20130517
  Transmission Date: 20140414
  Serious: No
  Sender: FDA-Public Use
  Company Number: US-B.I. PHARMACEUTICALS,INC./RIDGEFIELD-2013-BI-12215BP

PATIENT
  Age: 70 Year
  Sex: Male

DRUGS (19)
  1. SPIRIVA [Suspect]
     Indication: CHRONIC OBSTRUCTIVE PULMONARY DISEASE
     Dosage: 18 MG
     Route: 055
  2. HUMIRA [Suspect]
     Indication: COLITIS ULCERATIVE
     Dosage: 160 MG
     Dates: start: 20130124, end: 20130124
  3. HUMIRA [Suspect]
     Dosage: 80 MG
     Route: 065
     Dates: start: 20130207, end: 20130207
  4. HUMIRA [Suspect]
     Dosage: 40 MG
     Route: 065
     Dates: start: 20130221
  5. PRO-AIR HFA [Suspect]
     Indication: CHRONIC OBSTRUCTIVE PULMONARY DISEASE
     Route: 055
  6. SYMBICORT [Suspect]
     Indication: CHRONIC OBSTRUCTIVE PULMONARY DISEASE
     Dosage: 4 PUF
     Route: 055
  7. NYSTATIN [Suspect]
     Indication: ORAL FUNGAL INFECTION
     Dosage: 100000 U
  8. SIMVASTATINE [Concomitant]
     Indication: BLOOD CHOLESTEROL INCREASED
  9. PRANDIN [Concomitant]
     Indication: DIABETES MELLITUS
     Dosage: 12 MG
  10. AMLODIPINE [Concomitant]
     Indication: HYPERTENSION
     Dosage: 10 MG
  11. METOPROLOL [Concomitant]
     Indication: HYPERTENSION
     Dosage: 100 MG
  12. COLAZAL [Concomitant]
     Indication: COLITIS
     Dosage: 2250 MG
  13. LOMOTIL [Concomitant]
     Indication: DIARRHOEA
  14. BENTYL [Concomitant]
  15. NEBULIZER [Concomitant]
     Indication: CHRONIC OBSTRUCTIVE PULMONARY DISEASE
  16. VANCOMYCINE [Concomitant]
     Indication: CLOSTRIDIUM DIFFICILE INFECTION
     Dosage: 250 MG
  17. VANCOMYCINE [Concomitant]
     Dosage: 1000 MG
     Dates: start: 20130326
  18. ZOLPIDEM TARTRATE [Concomitant]
     Indication: SLEEP DISORDER
  19. PREDNISONE [Concomitant]
     Dosage: DAILY TAPER FROM 40MG TO 5MG
     Dates: end: 20130316

REACTIONS (3)
  - Clostridium difficile infection [Unknown]
  - Pneumonia [Unknown]
  - Oral fungal infection [Unknown]
